FAERS Safety Report 5693268-5 (Version None)
Quarter: 2008Q2

REPORT INFORMATION
  Report Type: 
  Country: None (occurrence: None)
  Receive Date: 20080403
  Receipt Date: 20080324
  Transmission Date: 20081010
  Serious: Yes (Other)
  Sender: FDA-Public Use
  Company Number: PHHY2008JP03996

PATIENT
  Age: 66 Year
  Sex: Female

DRUGS (5)
  1. DIOVAN [Suspect]
     Dosage: 80 MG/DAY
     Route: 048
     Dates: start: 20071201
  2. CRESTOR [Concomitant]
     Dates: start: 20080101
  3. PLAVIX [Concomitant]
     Route: 048
     Dates: start: 20080101
  4. ASPIRIN [Concomitant]
     Dates: start: 20080101
  5. NIKORANMART [Concomitant]
     Route: 048
     Dates: start: 20080101

REACTIONS (2)
  - ARTERIOGRAM CORONARY [None]
  - ECZEMA [None]
